FAERS Safety Report 6220407-X (Version None)
Quarter: 2009Q2

REPORT INFORMATION
  Report Type: 
  Country: None (occurrence: None)
  Receive Date: 20090610
  Receipt Date: 20090602
  Transmission Date: 20091009
  Serious: Yes (Other)
  Sender: FDA-Public Use
  Company Number: US-JNJFOC-20090600608

PATIENT
  Sex: Female
  Weight: 80.29 kg

DRUGS (20)
  1. REMICADE [Suspect]
     Route: 042
  2. REMICADE [Suspect]
     Route: 042
  3. REMICADE [Suspect]
     Indication: RHEUMATOID ARTHRITIS
     Route: 042
  4. FOLIC ACID [Concomitant]
  5. METHOTREXATE [Concomitant]
  6. PREDNISONE [Concomitant]
  7. PROZAC [Concomitant]
  8. PLAVIX [Concomitant]
  9. LIPITOR [Concomitant]
  10. AMBIEN [Concomitant]
  11. MODURETIC 5-50 [Concomitant]
  12. ENALAPRIL [Concomitant]
  13. SYNTHROID [Concomitant]
  14. ASPIRIN [Concomitant]
  15. DETROL LA [Concomitant]
  16. CALTRATE [Concomitant]
  17. FISH OIL [Concomitant]
  18. TOPROL-XL [Concomitant]
  19. XANAX [Concomitant]
  20. RESTASIS [Concomitant]

REACTIONS (5)
  - ARTHRALGIA [None]
  - CARDIAC DISORDER [None]
  - RASH [None]
  - RASH PRURITIC [None]
  - SKIN CANCER [None]
